FAERS Safety Report 10017243 (Version 1)
Quarter: 2014Q1

REPORT INFORMATION
  Report Type: Spontaneous
  Country: US (occurrence: None)
  Receive Date: 20140313
  Receipt Date: 20140313
  Transmission Date: 20141002
  Serious: Yes (Other)
  Sender: FDA-Public Use
  Company Number: None

PATIENT
  Age: 56 Year
  Sex: Female
  Weight: 86.18 kg

DRUGS (1)
  1. DULOXETINE [Suspect]
     Indication: FIBROMYALGIA
     Dosage: 1 PILL
     Route: 048
     Dates: start: 20140219, end: 20140311

REACTIONS (10)
  - Product substitution issue [None]
  - Drug withdrawal syndrome [None]
  - Dizziness [None]
  - Diarrhoea [None]
  - Anxiety [None]
  - Anger [None]
  - Insomnia [None]
  - Crying [None]
  - Drug ineffective [None]
  - Product quality issue [None]
